FAERS Safety Report 9827483 (Version 1)
Quarter: 2013Q4

REPORT INFORMATION
  Report Type: Spontaneous
  Country: US (occurrence: None)
  Receive Date: 20131118
  Receipt Date: 20131118
  Transmission Date: 20140711
  Serious: Yes (Hospitalization)
  Sender: FDA-Public Use
  Company Number: 2013AP008758

PATIENT
  Age: 61 Year
  Sex: Male
  Weight: 116 kg

DRUGS (10)
  1. LOSARTAN POTASSIUM TABLETS [Suspect]
     Indication: HYPERTENSION
  2. VALSARTAN [Suspect]
     Indication: BLOOD PRESSURE INCREASED
  3. LISINOPRIL [Concomitant]
  4. ASPIRIN [Concomitant]
  5. METFORMIN [Concomitant]
  6. ATENOLOL [Concomitant]
  7. SIMVASTATIN [Concomitant]
  8. RANITIDINE [Concomitant]
  9. NOVOLIN 70/30 [Concomitant]
  10. TEMAZEPAM [Concomitant]

REACTIONS (1)
  - Thrombocytopenia [None]
